FAERS Safety Report 10881405 (Version 2)
Quarter: 2015Q1

REPORT INFORMATION
  Report Type: Spontaneous
  Country: JP (occurrence: JP)
  Receive Date: 20150303
  Receipt Date: 20150320
  Transmission Date: 20150721
  Serious: Yes (Other)
  Sender: FDA-Public Use
  Company Number: JP-MYLANLABS-2015M1006459

PATIENT

DRUGS (10)
  1. IRINOTECAN HYDROCHLORIDE. [Suspect]
     Active Substance: IRINOTECAN HYDROCHLORIDE
     Indication: COLON CANCER
     Route: 065
     Dates: end: 201308
  2. BETAMETHASONE [Suspect]
     Active Substance: BETAMETHASONE
     Dosage: 0.5 MG/DAY
     Route: 048
  3. BETAMETHASONE [Suspect]
     Active Substance: BETAMETHASONE
     Dosage: 1 MG/DAY
     Route: 048
  4. BETAMETHASONE [Suspect]
     Active Substance: BETAMETHASONE
     Indication: ECTHYMA
     Dosage: 2 MG/DAY
     Route: 048
  5. TETRACYCLINE [Concomitant]
     Active Substance: TETRACYCLINE
     Dosage: 1000 MG/DAY
     Route: 048
  6. TETRACYCLINE [Concomitant]
     Active Substance: TETRACYCLINE
     Indication: ECTHYMA
     Dosage: 500 MG/DAY
     Route: 048
  7. PANITUMUMAB [Suspect]
     Active Substance: PANITUMUMAB
     Indication: COLON CANCER
     Route: 065
     Dates: start: 201302
  8. LEVOFOLINIC ACID [Suspect]
     Active Substance: LEVOLEUCOVORIN
     Indication: COLON CANCER
     Route: 065
     Dates: end: 201308
  9. FLUOROURACIL. [Suspect]
     Active Substance: FLUOROURACIL
     Indication: COLON CANCER
     Route: 065
     Dates: end: 201308
  10. CETUXIMAB [Suspect]
     Active Substance: CETUXIMAB
     Indication: COLON CANCER
     Route: 065
     Dates: end: 201308

REACTIONS (2)
  - Malaise [Unknown]
  - Ecthyma [Recovering/Resolving]
